FAERS Safety Report 10418905 (Version 1)
Quarter: 2014Q3

REPORT INFORMATION
  Report Type: Spontaneous
  Country: US (occurrence: US)
  Receive Date: 20140829
  Receipt Date: 20140829
  Transmission Date: 20150326
  Serious: Yes (Hospitalization, Other)
  Sender: FDA-Public Use
  Company Number: US-FRI-1000070199

PATIENT
  Age: 77 Year
  Sex: Female

DRUGS (4)
  1. DALIRESP [Suspect]
     Active Substance: ROFLUMILAST
     Indication: BRONCHITIS CHRONIC
  2. CRESTOR [Concomitant]
     Active Substance: ROSUVASTATIN CALCIUM
  3. SYNTHROID [Concomitant]
     Active Substance: LEVOTHYROXINE SODIUM
     Indication: HYPOTHYROIDISM
  4. DALIRESP [Suspect]
     Active Substance: ROFLUMILAST
     Indication: CHRONIC OBSTRUCTIVE PULMONARY DISEASE
     Dosage: 500 MCG
     Route: 048
     Dates: start: 201408, end: 201408

REACTIONS (7)
  - Abdominal pain upper [Recovered/Resolved]
  - Insomnia [Recovering/Resolving]
  - Adrenal mass [Not Recovered/Not Resolved]
  - Chronic obstructive pulmonary disease [Recovered/Resolved]
  - Diarrhoea [Recovered/Resolved]
  - Dizziness [Recovering/Resolving]
  - Hyperhidrosis [Recovering/Resolving]

NARRATIVE: CASE EVENT DATE: 201408
